FAERS Safety Report 14492162 (Version 2)
Quarter: 2018Q1

REPORT INFORMATION
  Report Type: Report from Study
  Country: ZA (occurrence: ZA)
  Receive Date: 20180206
  Receipt Date: 20180213
  Transmission Date: 20180509
  Serious: Yes (Hospitalization)
  Sender: FDA-Public Use
  Company Number: ZA-NOVOPROD-583665

PATIENT
  Age: 61 Year
  Sex: Female
  Weight: 78 kg

DRUGS (6)
  1. ASPIRIN                            /00002701/ [Concomitant]
     Active Substance: ASPIRIN
     Dosage: UNK
     Route: 065
  2. EXFORGE [Concomitant]
     Active Substance: AMLODIPINE BESYLATE\VALSARTAN
     Dosage: UNK
     Route: 065
  3. BILOCOR [Concomitant]
     Active Substance: BISOPROLOL FUMARATE
     Dosage: UNK
     Route: 065
  4. NOVOMIX 30 FLEXPEN [Suspect]
     Active Substance: INSULIN ASPART
     Indication: TYPE 2 DIABETES MELLITUS
     Dosage: 60 U, QD  (40U WITH BREAKFAST AND 20U WITH SUPPER)
     Route: 058
     Dates: start: 20180101
  5. NOVOMIX 30 FLEXPEN [Suspect]
     Active Substance: INSULIN ASPART
     Dosage: 70 U, QD (BEFORE BREAKFAST 30U, BEFORE LUNCH 10U AND BEFORE DINNER 30U)
     Route: 058
     Dates: start: 201801
  6. SIMVACOR [Concomitant]
     Active Substance: SIMVASTATIN
     Dosage: UNK
     Route: 065

REACTIONS (1)
  - Medical observation [Recovered/Resolved]

NARRATIVE: CASE EVENT DATE: 20180116
